FAERS Safety Report 21245405 (Version 1)
Quarter: 2022Q3

REPORT INFORMATION
  Report Type: Spontaneous
  Country: US (occurrence: US)
  Receive Date: 20220824
  Receipt Date: 20220824
  Transmission Date: 20221027
  Serious: No
  Sender: FDA-Public Use
  Company Number: US-AMGEN-USASP2022144170

PATIENT
  Sex: Male

DRUGS (10)
  1. REPATHA [Suspect]
     Active Substance: EVOLOCUMAB
     Indication: Arteriosclerosis
     Dosage: 140 MILLIGRAM, Q2WK
     Route: 058
  2. TRULICITY [Concomitant]
     Active Substance: DULAGLUTIDE
     Dosage: INJ. 0.75/0.5
  3. OMEPRAZOLE [Concomitant]
     Active Substance: OMEPRAZOLE
  4. AMOXICILLIN [Concomitant]
     Active Substance: AMOXICILLIN
  5. GABAPENTIN [Concomitant]
     Active Substance: GABAPENTIN
     Dosage: 600 MILLIGRAM
  6. IRBESARTAN [Concomitant]
     Active Substance: IRBESARTAN
     Dosage: 150 MILLIGRAM
  7. MELOXICAM [Concomitant]
     Active Substance: MELOXICAM
     Dosage: 15 MILLIGRAM
  8. METOPROLOL TARTRATE [Concomitant]
     Active Substance: METOPROLOL TARTRATE
     Dosage: 25 MILLIGRAM
  9. NOVOLIN 70/30 [Concomitant]
     Active Substance: INSULIN HUMAN
  10. TRAMADOL HCL [Concomitant]
     Active Substance: TRAMADOL HYDROCHLORIDE
     Dosage: 50 MILLIGRAM

REACTIONS (1)
  - COVID-19 [Unknown]
